FAERS Safety Report 7921329-6 (Version None)
Quarter: 2011Q4

REPORT INFORMATION
  Report Type: 
  Country: None (occurrence: None)
  Receive Date: 20111117
  Receipt Date: 20111107
  Transmission Date: 20120403
  Serious: Yes (Other)
  Sender: FDA-Public Use
  Company Number: US-BAYER-2011-004519

PATIENT
  Age: 22 Year
  Sex: Female
  Weight: 66 kg

DRUGS (3)
  1. YASMIN [Suspect]
     Indication: CONTRACEPTION
     Dosage: UNK
     Route: 048
     Dates: start: 20070207, end: 20070101
  2. ACETAMINOPHEN [Concomitant]
     Route: 048
  3. ROXICET [Concomitant]
     Indication: PAIN
     Dosage: UNK UNK, PRN
     Dates: start: 20070729

REACTIONS (3)
  - OEDEMA PERIPHERAL [None]
  - DEEP VEIN THROMBOSIS [None]
  - PAIN IN EXTREMITY [None]
